FAERS Safety Report 8762857 (Version 1)
Quarter: 2012Q4

REPORT INFORMATION
  Report Type: 
  Country: US (occurrence: US)
  Receive Date: 20120829
  Receipt Date: 20120829
  Transmission Date: 20130627
  Serious: No
  Sender: FDA-Public Use
  Company Number: US-PFIZER INC-2012208775

PATIENT
  Age: 58 Year
  Sex: Male
  Weight: 65.76 kg

DRUGS (1)
  1. VIAGRA [Suspect]
     Indication: ERECTILE DYSFUNCTION
     Dosage: 100 mg, as needed
     Route: 048

REACTIONS (2)
  - Inappropriate schedule of drug administration [Unknown]
  - Erection increased [Unknown]
